FAERS Safety Report 21477566 (Version 2)
Quarter: 2022Q4

REPORT INFORMATION
  Report Type: Report from Study
  Country: EG (occurrence: EG)
  Receive Date: 20221019
  Receipt Date: 20221028
  Transmission Date: 20230113
  Serious: Yes (Other)
  Sender: FDA-Public Use
  Company Number: EG-BAYER-2022A140777

PATIENT
  Sex: Female

DRUGS (2)
  1. EYLEA [Suspect]
     Active Substance: AFLIBERCEPT
     Indication: Product used for unknown indication
     Dosage: LEFT EYE; SOLUTION FOR INJECTION
     Route: 031
     Dates: start: 202105
  2. EYLEA [Suspect]
     Active Substance: AFLIBERCEPT
     Dosage: SECOND INJECTION ON LEFT EYE; SOLUTION FOR INJECTION
     Route: 031
     Dates: start: 20220512, end: 20220512

REACTIONS (3)
  - Thrombosis [Recovering/Resolving]
  - Eye haemorrhage [Unknown]
  - Cataract [Not Recovered/Not Resolved]

NARRATIVE: CASE EVENT DATE: 20220101
